FAERS Safety Report 23994883 (Version 1)
Quarter: 2024Q2

REPORT INFORMATION
  Report Type: Spontaneous
  Country: US (occurrence: US)
  Receive Date: 20240620
  Receipt Date: 20240620
  Transmission Date: 20240716
  Serious: Yes (Hospitalization, Other)
  Sender: FDA-Public Use
  Company Number: US-PFIZER INC-PV202400080010

PATIENT
  Sex: Female

DRUGS (4)
  1. XELJANZ [Interacting]
     Active Substance: TOFACITINIB CITRATE
     Indication: Rheumatoid arthritis
     Dosage: 5 MG, 2X/DAY
     Route: 048
     Dates: start: 202101, end: 2024
  2. HUMIRA [Interacting]
     Active Substance: ADALIMUMAB
     Dosage: UNK
     Route: 058
  3. DICLOFENAC [Interacting]
     Active Substance: DICLOFENAC
     Dosage: UNK
  4. OZEMPIC [Interacting]
     Active Substance: SEMAGLUTIDE
     Dosage: UNK

REACTIONS (6)
  - COVID-19 [Unknown]
  - Psoriatic arthropathy [Unknown]
  - Rheumatoid arthritis [Unknown]
  - Psoriasis [Unknown]
  - Ulcer [Unknown]
  - Drug interaction [Unknown]

NARRATIVE: CASE EVENT DATE: 20240101
